FAERS Safety Report 8088867 (Version 2)
Quarter: 2013Q4

REPORT INFORMATION
  Report Type: Spontaneous
  Country: US (occurrence: US)
  Receive Date: 20110812
  Receipt Date: 20131108
  Transmission Date: 20140711
  Serious: Yes (Life-Threatening, Other)
  Sender: FDA-Public Use
  Company Number: US-BAYER-2011-072193

PATIENT
  Age: 39 Year
  Sex: Female

DRUGS (7)
  1. YAZ [Suspect]
  2. DIPHENOXYLATE/ATROPINE [Concomitant]
  3. KETOROLAC [Concomitant]
  4. CYCLOBENZAPRINE [Concomitant]
  5. METHYLPREDNISOLON [Concomitant]
  6. AMOXICILLIN W/CLAVULANATE POTASSIUM [Concomitant]
     Dosage: 825-125 MG
  7. TUSSIONEX [Concomitant]

REACTIONS (12)
  - Organ failure [None]
  - Gallbladder disorder [None]
  - Gallbladder disorder [None]
  - Cholecystitis [None]
  - Cholecystitis chronic [None]
  - Fatigue [None]
  - Asthenia [None]
  - Pain [None]
  - Anxiety [None]
  - Pain [None]
  - Anhedonia [None]
  - General physical health deterioration [None]
